FAERS Safety Report 9645572 (Version 1)
Quarter: 2013Q4

REPORT INFORMATION
  Report Type: Spontaneous
  Country: US (occurrence: US)
  Receive Date: 20131025
  Receipt Date: 20131025
  Transmission Date: 20140711
  Serious: Yes (Other)
  Sender: FDA-Public Use
  Company Number: US-ASTRAZENECA-2013SE77272

PATIENT
  Age: 917 Month
  Sex: Male
  Weight: 93.4 kg

DRUGS (6)
  1. SYMBICORT [Suspect]
     Indication: CHRONIC OBSTRUCTIVE PULMONARY DISEASE
     Dosage: 160/4.5 UG, 2 PUFFS BID
     Route: 055
  2. RESTASIS [Concomitant]
     Indication: EYE INFECTION
     Dosage: BID
     Route: 050
     Dates: start: 201307
  3. SPIRIVA [Concomitant]
     Indication: CHRONIC OBSTRUCTIVE PULMONARY DISEASE
     Dosage: DAILY
     Route: 055
  4. OXYGEN [Concomitant]
     Indication: CHRONIC OBSTRUCTIVE PULMONARY DISEASE
     Dosage: PRN
     Route: 055
  5. INSULIN [Concomitant]
     Dosage: SLIDING SCALE
     Route: 050
  6. ADVAIR [Concomitant]

REACTIONS (9)
  - Cataract [Recovered/Resolved]
  - Eye infection [Unknown]
  - Lacrimation increased [Not Recovered/Not Resolved]
  - Eye discharge [Not Recovered/Not Resolved]
  - Somnolence [Not Recovered/Not Resolved]
  - Renal disorder [Not Recovered/Not Resolved]
  - Dyspnoea [Not Recovered/Not Resolved]
  - Somnambulism [Recovered/Resolved]
  - Nightmare [Recovered/Resolved]
